FAERS Safety Report 8875893 (Version 1)
Quarter: 2012Q4

REPORT INFORMATION
  Report Type: 
  Country: US (occurrence: US)
  Receive Date: 20121023
  Receipt Date: 20121023
  Transmission Date: 20130627
  Serious: Yes (Hospitalization)
  Sender: FDA-Public Use
  Company Number: US-GLAXOSMITHKLINE-A0735848A

PATIENT
  Age: 60 Year
  Sex: Male
  Weight: 90.9 kg

DRUGS (2)
  1. AVANDIA [Suspect]
     Indication: DIABETES MELLITUS
     Dosage: 4MG Per day
     Route: 048
     Dates: start: 20040312, end: 2007
  2. LISINOPRIL [Concomitant]

REACTIONS (4)
  - Myocardial infarction [Unknown]
  - Heart injury [Unknown]
  - Cardiac failure congestive [Unknown]
  - Coronary artery disease [Unknown]
